FAERS Safety Report 7068248-8 (Version None)
Quarter: 2010Q4

REPORT INFORMATION
  Report Type: 
  Country: None (occurrence: None)
  Receive Date: 20101028
  Receipt Date: 20101019
  Transmission Date: 20110411
  Serious: Yes (Other)
  Sender: FDA-Public Use
  Company Number: CA-ABBOTT-10P-028-0679561-00

PATIENT
  Sex: Female
  Weight: 58.112 kg

DRUGS (6)
  1. HUMIRA [Suspect]
     Indication: CROHN'S DISEASE
     Route: 058
     Dates: start: 20090314, end: 20100101
  2. HUMIRA [Suspect]
     Route: 058
     Dates: start: 20100101
  3. CODEINE [Concomitant]
     Indication: PAIN
     Route: 048
  4. SYNTHROID [Concomitant]
     Indication: HYPOTHYROIDISM
     Route: 048
  5. IMODIUM [Concomitant]
     Indication: CROHN'S DISEASE
     Dosage: 3-4 TABLETS DAILY AS NEEDED
  6. TRAZODONE [Concomitant]
     Indication: DEPRESSION
     Route: 048

REACTIONS (8)
  - DIZZINESS [None]
  - GRAND MAL CONVULSION [None]
  - HYPOPHAGIA [None]
  - JOINT SWELLING [None]
  - MUSCLE SPASMS [None]
  - PAIN IN EXTREMITY [None]
  - POLYNEUROPATHY [None]
  - STRESS [None]
